FAERS Safety Report 17261078 (Version 1)
Quarter: 2020Q1

REPORT INFORMATION
  Report Type: Spontaneous
  Country: US (occurrence: US)
  Receive Date: 20200113
  Receipt Date: 20200113
  Transmission Date: 20200409
  Serious: Yes (Other)
  Sender: FDA-Public Use
  Company Number: US-ROCHE-2515873

PATIENT
  Age: 57 Year
  Sex: Male
  Weight: 121.67 kg

DRUGS (18)
  1. CLOPIDOGREL [Concomitant]
     Active Substance: CLOPIDOGREL BISULFATE
  2. TESTOSTERONE. [Concomitant]
     Active Substance: TESTOSTERONE
  3. SYNJARDY XR [Concomitant]
     Active Substance: EMPAGLIFLOZIN\METFORMIN HYDROCHLORIDE
  4. PIOGLITAZONE. [Concomitant]
     Active Substance: PIOGLITAZONE
  5. PEMAFIBRATE [Concomitant]
     Active Substance: PEMAFIBRATE
  6. ESBRIET [Suspect]
     Active Substance: PIRFENIDONE
     Indication: IDIOPATHIC PULMONARY FIBROSIS
     Dosage: 3 TABLETS
     Route: 048
     Dates: start: 2019, end: 20200102
  7. MONTELUCAST [Concomitant]
     Active Substance: MONTELUKAST SODIUM
  8. VASCEPA [Concomitant]
     Active Substance: ICOSAPENT ETHYL
  9. FLUTICASONE. [Concomitant]
     Active Substance: FLUTICASONE
  10. PROAIR HFA [Concomitant]
     Active Substance: ALBUTEROL SULFATE
  11. ANASTROZOLE. [Concomitant]
     Active Substance: ANASTROZOLE
  12. AZELASTINE. [Concomitant]
     Active Substance: AZELASTINE HYDROCHLORIDE
  13. ROSUVASTATIN. [Concomitant]
     Active Substance: ROSUVASTATIN
  14. OZEMPIC [Concomitant]
     Active Substance: SEMAGLUTIDE
  15. ASPIRIN [ACETYLSALICYLIC ACID] [Concomitant]
     Active Substance: ASPIRIN
  16. CETIRIZINE [Concomitant]
     Active Substance: CETIRIZINE HYDROCHLORIDE
  17. METOPROLOL. [Concomitant]
     Active Substance: METOPROLOL
  18. FLOMAX [Concomitant]
     Active Substance: TAMSULOSIN HYDROCHLORIDE

REACTIONS (4)
  - Rash [Not Recovered/Not Resolved]
  - Eosinophil count increased [Unknown]
  - Neutrophil count increased [Unknown]
  - Hypoventilation [Unknown]

NARRATIVE: CASE EVENT DATE: 20191220
